FAERS Safety Report 18982417 (Version 1)
Quarter: 2021Q1

REPORT INFORMATION
  Report Type: Spontaneous
  Country: US (occurrence: US)
  Receive Date: 20210308
  Receipt Date: 20210308
  Transmission Date: 20210420
  Serious: Yes (Hospitalization, Other)
  Sender: FDA-Public Use
  Company Number: US-UPSHER-SMITH LABORATORIES, LLC-2021USL00108

PATIENT
  Sex: Female

DRUGS (7)
  1. UNSPECIFIED MEDICATIONS [Suspect]
     Active Substance: UNSPECIFIED INGREDIENT
     Indication: INSOMNIA
  2. UNSPECIFIED MEDICATIONS [Suspect]
     Active Substance: UNSPECIFIED INGREDIENT
     Indication: CATARACT
  3. UNSPECIFIED MEDICATIONS [Suspect]
     Active Substance: UNSPECIFIED INGREDIENT
     Indication: ANXIETY
  4. UNSPECIFIED MEDICATIONS [Suspect]
     Active Substance: UNSPECIFIED INGREDIENT
     Indication: PULMONARY TOXICITY
  5. UNSPECIFIED MEDICATIONS [Suspect]
     Active Substance: UNSPECIFIED INGREDIENT
     Indication: CHRONIC OBSTRUCTIVE PULMONARY DISEASE
  6. UNSPECIFIED MEDICATIONS [Suspect]
     Active Substance: UNSPECIFIED INGREDIENT
     Indication: DEPRESSION
  7. AMIODARONE HYDROCHLORIDE. [Suspect]
     Active Substance: AMIODARONE HYDROCHLORIDE
     Indication: ATRIAL FIBRILLATION
     Dosage: UNK
     Route: 048
     Dates: start: 200709

REACTIONS (16)
  - Gait disturbance [Unknown]
  - Off label use [Unknown]
  - Lung disorder [Unknown]
  - Anxiety [Unknown]
  - Oedema [Unknown]
  - Asthenia [Unknown]
  - Depression [Unknown]
  - Hypertension [Unknown]
  - Chronic obstructive pulmonary disease [Unknown]
  - Heart rate irregular [Unknown]
  - Unevaluable event [Unknown]
  - Insomnia [Unknown]
  - Cataract [Unknown]
  - Pulmonary toxicity [Unknown]
  - Chest pain [Unknown]
  - Visual impairment [Unknown]

NARRATIVE: CASE EVENT DATE: 200709
